FAERS Safety Report 9812823 (Version 3)
Quarter: 2014Q2

REPORT INFORMATION
  Report Type: Spontaneous
  Country: US (occurrence: US)
  Receive Date: 20140113
  Receipt Date: 20140616
  Transmission Date: 20141212
  Serious: No
  Sender: FDA-Public Use
  Company Number: US-009507513-1401USA001371

PATIENT
  Sex: Male

DRUGS (2)
  1. PROPECIA [Suspect]
     Indication: ANDROGENETIC ALOPECIA
     Dosage: 1 MG, QD
     Route: 048
     Dates: start: 20100114, end: 20110304
  2. ADDERALL TABLETS [Concomitant]
     Indication: ATTENTION DEFICIT/HYPERACTIVITY DISORDER
     Dosage: 20 MG, UNK
     Route: 048
     Dates: start: 200102, end: 20130429

REACTIONS (12)
  - Organic erectile dysfunction [Unknown]
  - Erectile dysfunction [Not Recovered/Not Resolved]
  - Sexual dysfunction [Not Recovered/Not Resolved]
  - Libido decreased [Unknown]
  - Testicular failure [Unknown]
  - Depression [Unknown]
  - Anxiety [Unknown]
  - Malaise [Unknown]
  - Fatigue [Unknown]
  - Blood testosterone decreased [Recovered/Resolved]
  - Testicular pain [Recovering/Resolving]
  - Genital disorder male [Unknown]
